FAERS Safety Report 7319047-0 (Version None)
Quarter: 2011Q1

REPORT INFORMATION
  Report Type: 
  Country: None (occurrence: None)
  Receive Date: 20110228
  Receipt Date: 20100110
  Transmission Date: 20110831
  Serious: Yes (Death, Hospitalization, Other)
  Sender: FDA-Public Use
  Company Number: US-BAYER-201010478NA

PATIENT
  Sex: Male
  Weight: 72.562 kg

DRUGS (23)
  1. TRASYLOL [Suspect]
     Indication: CORONARY ARTERY BYPASS
     Dosage: 1 ML, UNK, INITIAL (TEST) DOSE
     Route: 042
  2. CONTRAST MEDIA [Concomitant]
     Indication: CATHETERISATION CARDIAC
     Dosage: UNK
     Dates: start: 20000201
  3. TOPROL-XL [Concomitant]
     Indication: PRODUCT USED FOR UNKNOWN INDICATION
     Dosage: 50 MG, QD
     Route: 048
     Dates: start: 20000201, end: 20021001
  4. NITROGLYCERIN [Concomitant]
     Indication: PRODUCT USED FOR UNKNOWN INDICATION
     Dosage: RATE VARIED
     Route: 041
     Dates: start: 20000413, end: 20000413
  5. PROPOFOL [Concomitant]
     Dosage: RATE VARIED
     Route: 041
     Dates: start: 20000413, end: 20000413
  6. TRASYLOL [Suspect]
     Indication: VALVULOPLASTY CARDIAC
     Dosage: 200 ML FOLLOWED BY 50 ML/HOUR DRIP
     Route: 042
     Dates: start: 20000413, end: 20000413
  7. NORMAL SALINE [Concomitant]
     Dosage: 2.5 L, UNK
     Route: 042
     Dates: start: 20000413, end: 20000413
  8. PLATELETS [Concomitant]
     Indication: CORONARY ARTERY BYPASS
     Dosage: 10 U, UNK
     Dates: start: 20000413
  9. DIOVAN [Concomitant]
     Indication: PRODUCT USED FOR UNKNOWN INDICATION
     Dosage: 160 MG, QD
     Route: 048
     Dates: start: 20000201, end: 20021001
  10. ANCEF [Concomitant]
     Dosage: 1 G, UNK
     Route: 042
     Dates: start: 20000413, end: 20000416
  11. HEPARIN [Concomitant]
     Dosage: 10 ML, UNK
     Dates: start: 20000413, end: 20000413
  12. PLATELETS [Concomitant]
     Indication: VALVULOPLASTY CARDIAC
  13. DIANEAL [Concomitant]
     Indication: DIALYSIS
     Dosage: UNK
     Dates: start: 20000413
  14. PROTAMINE SULFATE [Concomitant]
     Dosage: 300 MG, UNK
     Route: 042
     Dates: start: 20000413, end: 20000413
  15. ALLOPURINOL [Concomitant]
     Indication: PRODUCT USED FOR UNKNOWN INDICATION
     Dosage: 150 MG, QD
     Route: 048
     Dates: start: 20000201, end: 20021001
  16. UNCODEABLE ^UNCLASSIFIABLE^ [Concomitant]
     Dosage: 3 L, UNK
     Dates: start: 20000413, end: 20000413
  17. RED BLOOD CELLS [Concomitant]
     Indication: CORONARY ARTERY BYPASS
     Dosage: 8 U, UNK
     Dates: start: 20000413
  18. FENTANYL [Concomitant]
     Indication: ANAESTHESIA
     Dosage: UNK
     Route: 042
     Dates: start: 20000413, end: 20000413
  19. SODIUM BICARBONATE [Concomitant]
     Dosage: 15 ML, UNK
     Dates: start: 20000413, end: 20000413
  20. ISO [Concomitant]
     Dosage: UNK
     Route: 055
     Dates: start: 20000413, end: 20000413
  21. DOBUTAMINE HCL [Concomitant]
     Dosage: RATE VARIED
     Route: 041
     Dates: start: 20000413, end: 20000413
  22. MANNITOL [Concomitant]
     Dosage: 100 ML, UNK
     Dates: start: 20000413, end: 20000413
  23. VERSED [Concomitant]
     Indication: ANAESTHESIA
     Dosage: 5 MG, UNK
     Route: 042
     Dates: start: 20000413, end: 20000413

REACTIONS (14)
  - PAIN [None]
  - CHILLS [None]
  - ANHEDONIA [None]
  - RENAL FAILURE [None]
  - DEPRESSION [None]
  - ANXIETY [None]
  - CEREBROVASCULAR ACCIDENT [None]
  - MYOCARDIAL INFARCTION [None]
  - FEAR [None]
  - PYREXIA [None]
  - DEATH [None]
  - INJURY [None]
  - UNEVALUABLE EVENT [None]
  - KLEBSIELLA SEPSIS [None]
